FAERS Safety Report 6165567-4 (Version None)
Quarter: 2009Q2

REPORT INFORMATION
  Report Type: 
  Country: None (occurrence: None)
  Receive Date: 20090421
  Receipt Date: 20090421
  Transmission Date: 20091009
  Serious: Yes (Other)
  Sender: FDA-Public Use
  Company Number: None

PATIENT
  Age: 29 Year
  Sex: Female
  Weight: 48.0813 kg

DRUGS (4)
  1. LEVAQUIN [Suspect]
     Indication: INFECTION PROPHYLAXIS
     Dosage: 500 MG 1X DAILY PO
     Route: 048
     Dates: start: 20081104, end: 20081109
  2. GENERAL ANESTHESIA [Concomitant]
  3. PERCOCET [Concomitant]
  4. IBUPROFEN [Concomitant]

REACTIONS (9)
  - ANXIETY [None]
  - BURNING SENSATION [None]
  - DEPRESSION [None]
  - INSOMNIA [None]
  - INTRACRANIAL PRESSURE INCREASED [None]
  - PARAESTHESIA [None]
  - PULMONARY OEDEMA [None]
  - TENDON DISORDER [None]
  - WEIGHT DECREASED [None]
